FAERS Safety Report 14275462 (Version 4)
Quarter: 2021Q1

REPORT INFORMATION
  Report Type: Spontaneous
  Country: US (occurrence: US)
  Receive Date: 20171212
  Receipt Date: 20210329
  Transmission Date: 20210419
  Serious: Yes (Disabling)
  Sender: FDA-Public Use
  Company Number: US-TEVA-2017-US-832480

PATIENT
  Age: 57 Year
  Sex: Female
  Weight: 61.2 kg

DRUGS (3)
  1. ADRIAMYCIN [Suspect]
     Active Substance: DOXORUBICIN HYDROCHLORIDE
     Dosage: 101.4 MG, FREQUENCY : EVERY WEEK
     Route: 042
     Dates: start: 20130530, end: 20130801
  2. TAXOTERE [Suspect]
     Active Substance: DOCETAXEL
     Indication: BREAST CANCER FEMALE
     Dosage: 8.45 ML TAXOTERE 80 MG/4 ML (20 MG/ML) IV SOLUTION
     Route: 042
     Dates: end: 201310
  3. CYCLOPHOSPHAMIDE. [Suspect]
     Active Substance: CYCLOPHOSPHAMIDE
     Dosage: 1014 MG, FREQUENCY :EVERY WEEK
     Route: 042
     Dates: start: 20130530, end: 20130801

REACTIONS (4)
  - Hair colour changes [Unknown]
  - Hair texture abnormal [Unknown]
  - Alopecia areata [Unknown]
  - Madarosis [Unknown]
